FAERS Safety Report 10151873 (Version 1)
Quarter: 2014Q2

REPORT INFORMATION
  Report Type: Spontaneous
  Country: US (occurrence: None)
  Receive Date: 20140430
  Receipt Date: 20140430
  Transmission Date: 20141212
  Serious: Yes (Death)
  Sender: FDA-Public Use
  Company Number: 2014-US-004723

PATIENT
  Age: 83 Year
  Sex: Female

DRUGS (1)
  1. CLOZAPINE [Suspect]
     Indication: SCHIZOAFFECTIVE DISORDER
     Route: 048
     Dates: start: 20130329, end: 20140320

REACTIONS (4)
  - Dementia [None]
  - Decreased appetite [None]
  - Anxiety [None]
  - Asthenia [None]
